FAERS Safety Report 5625509-4 (Version None)
Quarter: 2008Q1

REPORT INFORMATION
  Report Type: 
  Country: None (occurrence: None)
  Receive Date: 20080214
  Receipt Date: 20080211
  Transmission Date: 20080703
  Serious: Yes (Life-Threatening, Other)
  Sender: FDA-Public Use
  Company Number: US-RB-009298-08

PATIENT
  Age: 40 Year
  Sex: Female

DRUGS (2)
  1. SUBOXONE [Suspect]
     Route: 060
     Dates: start: 20070201
  2. WELLBUTRIN [Concomitant]
     Indication: DEPRESSION
     Dosage: DOSE UNKNOWN

REACTIONS (1)
  - COLON CANCER [None]
